FAERS Safety Report 5217659-1 (Version None)
Quarter: 2006Q4

REPORT INFORMATION
  Report Type: 
  Country: None (occurrence: None)
  Receive Date: 20061130
  Receipt Date: 20060807
  Transmission Date: 20070319
  Serious: Yes (Hospitalization)
  Sender: FDA-Public Use
  Company Number: US200601001315

PATIENT
  Age: 43 Year
  Sex: Male
  Weight: 95.2 kg

DRUGS (1)
  1. ZYPREXA [Suspect]
     Indication: SCHIZOPHRENIA, PARANOID TYPE
     Dosage: 20 MG, DAILY 1 D, ORAL
     Route: 048
     Dates: start: 19970101, end: 20030701

REACTIONS (2)
  - DIABETES MELLITUS [None]
  - OBESITY [None]
